FAERS Safety Report 7964159-1 (Version None)
Quarter: 2011Q4

REPORT INFORMATION
  Report Type: 
  Country: None (occurrence: None)
  Receive Date: 20111208
  Receipt Date: 20111130
  Transmission Date: 20120403
  Serious: Yes (Life-Threatening, Hospitalization, Other)
  Sender: FDA-Public Use
  Company Number: DK-BRISTOL-MYERS SQUIBB COMPANY-16067928

PATIENT
  Age: 34 Year
  Sex: Female
  Weight: 66 kg

DRUGS (10)
  1. NOXAFIL [Interacting]
     Indication: HEPATOSPLENIC CANDIDIASIS
     Dosage: 40MG/ML 400MG
     Route: 048
     Dates: start: 20071020, end: 20080125
  2. ALLOPURINOL [Suspect]
     Dosage: TABLET
     Route: 048
  3. CYTARABINE [Suspect]
     Indication: ACUTE LEUKAEMIA IN REMISSION
  4. ONDANSETRON [Interacting]
     Dosage: ALSO TAKEN ON 22JAN08
     Dates: end: 20080125
  5. PANTOPRAZOLE SODIUM [Suspect]
     Dosage: ALSO TAKEN ON 22JAN08
  6. DEXAMETHASONE [Suspect]
  7. POTASSIUM CHLORIDE [Suspect]
     Dosage: PROLONGED RELEASE TABS
     Route: 048
  8. ETOPOSIDE [Suspect]
     Indication: ACUTE LEUKAEMIA IN REMISSION
  9. ACYCLOVIR [Suspect]
  10. VOGALENE [Suspect]

REACTIONS (6)
  - ATRIOVENTRICULAR BLOCK SECOND DEGREE [None]
  - SINUS TACHYCARDIA [None]
  - ARRHYTHMIA [None]
  - DRUG INTERACTION [None]
  - SINOATRIAL BLOCK [None]
  - BRADYCARDIA [None]
